FAERS Safety Report 24359196 (Version 1)
Quarter: 2024Q3

REPORT INFORMATION
  Report Type: Spontaneous
  Country: US (occurrence: US)
  Receive Date: 20240924
  Receipt Date: 20240924
  Transmission Date: 20241017
  Serious: No
  Sender: Unknown Manufacturer
  Company Number: US-BLUEPRINT MEDICINES CORPORATION-2024BUS004437

PATIENT

DRUGS (1)
  1. GAVRETO [Suspect]
     Active Substance: PRALSETINIB
     Indication: Thyroid cancer
     Dosage: UNK
     Route: 065

REACTIONS (1)
  - Dry mouth [Unknown]
